FAERS Safety Report 16742038 (Version 1)
Quarter: 2019Q3

REPORT INFORMATION
  Report Type: Spontaneous
  Country: GB (occurrence: GB)
  Receive Date: 20190826
  Receipt Date: 20190826
  Transmission Date: 20191005
  Serious: Yes (Other)
  Sender: FDA-Public Use
  Company Number: GB-TEVA-2019-GB-1096227

PATIENT
  Age: 49 Year
  Sex: Female
  Weight: 55 kg

DRUGS (7)
  1. QVAR [Concomitant]
     Active Substance: BECLOMETHASONE DIPROPIONATE
     Dosage: 4 DOSAGE FORM FOR EVERY 1 DAYS
     Route: 055
     Dates: start: 20180420
  2. OPTILAST [Concomitant]
     Dosage: 2GTT FOR EVERY 1 DAYS
     Dates: start: 20190719
  3. EVOREL [Concomitant]
     Dosage: APPLY
     Dates: start: 20190718
  4. DYMISTA [Concomitant]
     Active Substance: AZELASTINE HYDROCHLORIDE\FLUTICASONE PROPIONATE
     Dosage: PUFF  2 DOSAGE FORM FOR EVERY 1 DAYS
     Dates: start: 20190719
  5. FEXOFENADINE [Suspect]
     Active Substance: FEXOFENADINE HYDROCHLORIDE
     Dosage: 180 MILLIGRAM FOR EVERY 1 DAYS
     Dates: start: 20190719
  6. SALBUTAMOL [Concomitant]
     Active Substance: ALBUTEROL
     Dosage: 2 DOSAGE FORM
     Route: 055
     Dates: start: 20180626
  7. HYLO-FORTE [Concomitant]
     Active Substance: HYALURONATE SODIUM
     Dosage: USE AS DIRECTED
     Dates: start: 20190718, end: 20190723

REACTIONS (2)
  - Asthma [Recovered/Resolved]
  - Palpitations [Unknown]
